FAERS Safety Report 24738520 (Version 2)
Quarter: 2024Q4

REPORT INFORMATION
  Report Type: Spontaneous
  Country: FR (occurrence: FR)
  Receive Date: 20241216
  Receipt Date: 20241223
  Transmission Date: 20250115
  Serious: Yes (Other)
  Sender: OTSUKA
  Company Number: None

PATIENT
  Age: 36 Year
  Sex: Male
  Weight: 77 kg

DRUGS (3)
  1. ABILIFY [Suspect]
     Active Substance: ARIPIPRAZOLE
     Indication: Bipolar disorder
     Dosage: 30 MG, QD
     Route: 048
  2. TERALITHE [Suspect]
     Active Substance: LITHIUM CARBONATE
     Indication: Bipolar disorder
     Dosage: 1200 MG, QD (IN THE MORNING)
     Route: 048
  3. QUETIAPINE FUMARATE [Suspect]
     Active Substance: QUETIAPINE FUMARATE
     Indication: Bipolar disorder
     Dosage: 1 DF, QD (IN THE EVENING)
     Route: 048

REACTIONS (3)
  - Sleep terror [Unknown]
  - Sleep talking [Unknown]
  - Somnambulism [Unknown]

NARRATIVE: CASE EVENT DATE: 20240101
